FAERS Safety Report 14710389 (Version 3)
Quarter: 2018Q2

REPORT INFORMATION
  Report Type: Report from Study
  Country: US (occurrence: US)
  Receive Date: 20180403
  Receipt Date: 20180504
  Transmission Date: 20180711
  Serious: Yes (Hospitalization, Other)
  Sender: FDA-Public Use
  Company Number: US-ASTRAZENECA-2017SE60357

PATIENT
  Age: 767 Month
  Sex: Female
  Weight: 76.7 kg

DRUGS (25)
  1. METOPROLOL TARTRATE. [Suspect]
     Active Substance: METOPROLOL TARTRATE
     Route: 048
     Dates: end: 201802
  2. BRILINTA [Suspect]
     Active Substance: TICAGRELOR
     Indication: DYSPNOEA
     Route: 048
     Dates: start: 201601, end: 201701
  3. BRILINTA [Suspect]
     Active Substance: TICAGRELOR
     Indication: DYSPNOEA
     Route: 048
     Dates: start: 20170530
  4. XANAX [Concomitant]
     Active Substance: ALPRAZOLAM
     Dosage: 0.25MG AS REQUIRED
  5. HYDROCHLOROTHIAZIDE. [Concomitant]
     Active Substance: HYDROCHLOROTHIAZIDE
     Indication: CARDIAC FAILURE CONGESTIVE
     Route: 048
  6. BRILINTA [Suspect]
     Active Substance: TICAGRELOR
     Indication: STENT PLACEMENT
     Route: 048
     Dates: start: 201601, end: 201701
  7. BRILINTA [Suspect]
     Active Substance: TICAGRELOR
     Indication: LUNG DISORDER
     Route: 048
     Dates: start: 201612
  8. LISINOPRIL. [Suspect]
     Active Substance: LISINOPRIL
     Indication: HYPERTENSION
     Route: 048
  9. BRILINTA [Suspect]
     Active Substance: TICAGRELOR
     Indication: STENT PLACEMENT
     Route: 048
     Dates: start: 201612
  10. RAMIPRIL. [Concomitant]
     Active Substance: RAMIPRIL
     Indication: BLOOD PRESSURE ABNORMAL
     Route: 048
     Dates: start: 201803
  11. METOPROLOL SUCCINATE. [Suspect]
     Active Substance: METOPROLOL SUCCINATE
     Indication: BLOOD PRESSURE ABNORMAL
     Route: 048
     Dates: start: 20180220
  12. BRILINTA [Suspect]
     Active Substance: TICAGRELOR
     Indication: LUNG DISORDER
     Route: 048
     Dates: start: 201601, end: 201701
  13. BRILINTA [Suspect]
     Active Substance: TICAGRELOR
     Indication: STENT PLACEMENT
     Route: 048
     Dates: start: 20170530
  14. BRILINTA [Suspect]
     Active Substance: TICAGRELOR
     Indication: DYSPNOEA
     Route: 048
     Dates: start: 201612
  15. BRILINTA [Suspect]
     Active Substance: TICAGRELOR
     Indication: STENT PLACEMENT
     Route: 048
     Dates: start: 201701
  16. BRILINTA [Suspect]
     Active Substance: TICAGRELOR
     Indication: DYSPNOEA
     Route: 048
     Dates: start: 201701
  17. ASPIRIN. [Concomitant]
     Active Substance: ASPIRIN
     Indication: ADJUVANT THERAPY
     Route: 048
     Dates: start: 201601
  18. METFORMIN [Concomitant]
     Active Substance: METFORMIN HYDROCHLORIDE
     Route: 048
  19. NORVASC [Concomitant]
     Active Substance: AMLODIPINE BESYLATE
     Indication: BLOOD PRESSURE MEASUREMENT
     Dosage: 0.25MG AS REQUIRED
     Route: 048
  20. MAGNESIUM CITRATE. [Concomitant]
     Active Substance: MAGNESIUM CITRATE
     Dosage: 200.0MG UNKNOWN
     Route: 048
     Dates: start: 201802
  21. BRILINTA [Suspect]
     Active Substance: TICAGRELOR
     Indication: LUNG DISORDER
     Route: 048
     Dates: start: 201701
  22. BRILINTA [Suspect]
     Active Substance: TICAGRELOR
     Indication: LUNG DISORDER
     Route: 048
     Dates: start: 20170530
  23. RAMIPRIL. [Concomitant]
     Active Substance: RAMIPRIL
     Indication: BLOOD PRESSURE ABNORMAL
     Route: 048
     Dates: start: 201601
  24. LIPITOR [Concomitant]
     Active Substance: ATORVASTATIN CALCIUM
     Route: 048
  25. NORVASC [Concomitant]
     Active Substance: AMLODIPINE BESYLATE
     Indication: BLOOD PRESSURE MEASUREMENT
     Dosage: 5.0MG AS REQUIRED
     Route: 048
     Dates: start: 20180120

REACTIONS (26)
  - Nervousness [Unknown]
  - Total lung capacity decreased [Unknown]
  - Discomfort [Unknown]
  - Circumstance or information capable of leading to medication error [Unknown]
  - Haematochezia [Recovered/Resolved]
  - Blood cholesterol abnormal [Unknown]
  - Blister [Recovered/Resolved]
  - Palpitations [Unknown]
  - Headache [Unknown]
  - Abscess jaw [Unknown]
  - Dyspnoea [Recovered/Resolved]
  - Weight increased [Unknown]
  - Vein disorder [Unknown]
  - Drug ineffective [Unknown]
  - Drug dose omission [Unknown]
  - Off label use [Unknown]
  - Blood pressure increased [Unknown]
  - Pain in extremity [Recovered/Resolved]
  - Weight decreased [Unknown]
  - Product physical issue [Unknown]
  - Silent myocardial infarction [Recovered/Resolved]
  - Tooth abscess [Unknown]
  - Pain [Unknown]
  - Cardiac failure congestive [Unknown]
  - Product used for unknown indication [Unknown]
  - Product use issue [Unknown]

NARRATIVE: CASE EVENT DATE: 201701
